FAERS Safety Report 22623907 (Version 3)
Quarter: 2023Q4

REPORT INFORMATION
  Report Type: Spontaneous
  Country: US (occurrence: US)
  Receive Date: 20230621
  Receipt Date: 20231220
  Transmission Date: 20240110
  Serious: No
  Sender: FDA-Public Use
  Company Number: US-PROVENTION BIO, INC.-US-PRAG-23-00033

PATIENT
  Age: 19 Year
  Sex: Male
  Weight: 81.646 kg

DRUGS (11)
  1. TZIELD [Suspect]
     Active Substance: TEPLIZUMAB-MZWV
     Indication: Diabetes prophylaxis
     Dosage: 750 MICROGRAM, SINGLE
     Route: 042
     Dates: start: 20230508, end: 20230508
  2. TZIELD [Suspect]
     Active Substance: TEPLIZUMAB-MZWV
     Dosage: 309 UNK, SINGLE
     Route: 042
     Dates: start: 20230508, end: 20230508
  3. TZIELD [Suspect]
     Active Substance: TEPLIZUMAB-MZWV
     Dosage: 65 UNK, SINGLE
     Route: 042
     Dates: start: 20230509, end: 20230509
  4. TZIELD [Suspect]
     Active Substance: TEPLIZUMAB-MZWV
     Dosage: 125 UNK, SINGLE
     Route: 042
     Dates: start: 20230510, end: 20230510
  5. TZIELD [Suspect]
     Active Substance: TEPLIZUMAB-MZWV
     Dosage: 500 UNK, SINGLE
     Route: 042
     Dates: start: 20230511, end: 20230511
  6. TZIELD [Suspect]
     Active Substance: TEPLIZUMAB-MZWV
     Dosage: 1030 UNK, SINGLE
     Route: 042
     Dates: start: 20230512, end: 20230512
  7. TZIELD [Suspect]
     Active Substance: TEPLIZUMAB-MZWV
     Dosage: UNK UNK, SINGLE
     Route: 042
     Dates: start: 20230513, end: 20230513
  8. TZIELD [Suspect]
     Active Substance: TEPLIZUMAB-MZWV
     Dosage: UNK UNK, SINGLE
     Route: 042
     Dates: start: 20230514, end: 20230514
  9. TZIELD [Suspect]
     Active Substance: TEPLIZUMAB-MZWV
     Dosage: 1030 UNK, QD
     Route: 042
     Dates: start: 20230515, end: 20230521
  10. TRESIBA [Concomitant]
     Active Substance: INSULIN DEGLUDEC
     Indication: Product used for unknown indication
     Dosage: 5 INTERNATIONAL UNIT
  11. NOVOLOG [Concomitant]
     Active Substance: INSULIN ASPART
     Indication: Product used for unknown indication

REACTIONS (3)
  - Dose calculation error [Recovered/Resolved]
  - Incorrect dose administered [Recovered/Resolved]
  - Fatigue [Recovered/Resolved]

NARRATIVE: CASE EVENT DATE: 20230508
